FAERS Safety Report 7536034-8 (Version None)
Quarter: 2011Q2

REPORT INFORMATION
  Report Type: 
  Country: None (occurrence: None)
  Receive Date: 20110609
  Receipt Date: 20110606
  Transmission Date: 20111010
  Serious: No
  Sender: FDA-Public Use
  Company Number: US-PFIZER INC-2011043601

PATIENT
  Sex: Female
  Weight: 81.633 kg

DRUGS (3)
  1. TYLENOL-500 [Concomitant]
     Dosage: UNK
  2. SERTRALINE HYDROCHLORIDE [Suspect]
     Indication: DEPRESSION
     Dosage: 100 MG, DAILY
     Route: 048
     Dates: start: 20101101, end: 20110201
  3. GEODON [Suspect]
     Dosage: 20 MG, UNK

REACTIONS (3)
  - PRODUCT TASTE ABNORMAL [None]
  - FEELING ABNORMAL [None]
  - PRODUCT ODOUR ABNORMAL [None]
